FAERS Safety Report 21555475 (Version 1)
Quarter: 2022Q4

REPORT INFORMATION
  Report Type: Spontaneous
  Country: US (occurrence: None)
  Receive Date: 20221103
  Receipt Date: 20221103
  Transmission Date: 20230113
  Serious: No
  Sender: FDA-Public Use
  Company Number: None

PATIENT
  Age: 51 Year
  Sex: Female
  Weight: 66.6 kg

DRUGS (4)
  1. ELIQUIS [Suspect]
     Active Substance: APIXABAN
     Indication: Thrombosis prophylaxis
     Dosage: OTHER QUANTITY : 1 TABLET(S);?FREQUENCY : DAILY;?
     Route: 048
     Dates: start: 20200901, end: 20220401
  2. SAVAYSA [Concomitant]
     Active Substance: EDOXABAN TOSYLATE
  3. Kirkland Signature USDA Organic Multivitamin [Concomitant]
  4. LORATADINE [Concomitant]
     Active Substance: LORATADINE

REACTIONS (1)
  - Peripheral swelling [None]
